FAERS Safety Report 9529680 (Version 1)
Quarter: 2013Q3

REPORT INFORMATION
  Report Type: Spontaneous
  Country: US (occurrence: US)
  Receive Date: 20130917
  Receipt Date: 20130917
  Transmission Date: 20140515
  Serious: Yes (Other)
  Sender: FDA-Public Use
  Company Number: US-GLAXOSMITHKLINE-A1041528A

PATIENT
  Age: 62 Year
  Sex: Female

DRUGS (6)
  1. VENTOLIN HFA [Suspect]
     Indication: ASTHMA
     Dosage: 2PUFF SIX TIMES PER DAY
     Route: 055
  2. PULMICORT [Concomitant]
  3. ALBUTEROL/IPRATROPIUM [Concomitant]
  4. NEXIUM [Concomitant]
  5. BYSTOLIC [Concomitant]
  6. POTASSIUM IODIDE [Concomitant]

REACTIONS (5)
  - Lung infection [Recovered/Resolved]
  - Ill-defined disorder [Recovered/Resolved]
  - Prescribed overdose [Recovered/Resolved]
  - Bronchitis [Recovered/Resolved]
  - Sinusitis [Recovered/Resolved]
